FAERS Safety Report 25464616 (Version 2)
Quarter: 2025Q3

REPORT INFORMATION
  Report Type: Spontaneous
  Country: GB (occurrence: GB)
  Receive Date: 20250621
  Receipt Date: 20250809
  Transmission Date: 20251021
  Serious: Yes (Hospitalization)
  Sender: ALEXION PHARMACEUTICALS
  Company Number: GB-AstraZeneca-CH-00893574A

PATIENT
  Sex: Female

DRUGS (1)
  1. DAPAGLIFLOZIN [Suspect]
     Active Substance: DAPAGLIFLOZIN
     Indication: Cardiac disorder
     Route: 065

REACTIONS (8)
  - Myocardial infarction [Recovered/Resolved]
  - Lower limb fracture [Unknown]
  - Dyspnoea [Unknown]
  - Confusional state [Not Recovered/Not Resolved]
  - Weight decreased [Recovered/Resolved with Sequelae]
  - Abdominal pain upper [Unknown]
  - Illness [Recovered/Resolved]
  - Insomnia [Recovered/Resolved]

NARRATIVE: CASE EVENT DATE: 20250422
